FAERS Safety Report 16510067 (Version 6)
Quarter: 2020Q4

REPORT INFORMATION
  Report Type: Report from Study
  Country: US (occurrence: US)
  Receive Date: 20190702
  Receipt Date: 20201127
  Transmission Date: 20210113
  Serious: Yes (Other)
  Sender: FDA-Public Use
  Company Number: US-AMGEN-USASL2019103660

PATIENT
  Age: 61 Year
  Sex: Female

DRUGS (6)
  1. ENBREL [Suspect]
     Active Substance: ETANERCEPT
     Dosage: 50 MILLIGRAM, QWK
     Route: 065
  2. ENBREL [Suspect]
     Active Substance: ETANERCEPT
     Dosage: 50 MILLIGRAM, QWK
     Route: 065
  3. ENBREL [Suspect]
     Active Substance: ETANERCEPT
     Dosage: 50 MILLIGRAM, QWK
     Route: 065
     Dates: start: 20190105
  4. ETODOLAC. [Concomitant]
     Active Substance: ETODOLAC
     Dosage: UNK
     Route: 065
  5. ENBREL [Suspect]
     Active Substance: ETANERCEPT
     Indication: RHEUMATOID ARTHRITIS
     Dosage: 50 MILLIGRAM, QWK
     Route: 065
     Dates: start: 201812, end: 201812
  6. ETODOLAC. [Concomitant]
     Active Substance: ETODOLAC
     Dosage: UNK UNK, QD
     Route: 065

REACTIONS (9)
  - Drug dose omission by device [Unknown]
  - Incorrect dose administered [Unknown]
  - Accidental exposure to product [Unknown]
  - Wrong technique in product usage process [Unknown]
  - Rheumatoid arthritis [Recovering/Resolving]
  - Nasopharyngitis [Recovered/Resolved]
  - Malaise [Unknown]
  - Device issue [Unknown]
  - Fear of injection [Unknown]

NARRATIVE: CASE EVENT DATE: 201812
